FAERS Safety Report 4381771-X (Version None)
Quarter: 2004Q2

REPORT INFORMATION
  Report Type: 
  Country: None (occurrence: None)
  Receive Date: 20040603
  Receipt Date: 20030815
  Transmission Date: 20050107
  Serious: Yes (Other)
  Sender: FDA-Public Use
  Company Number: 200317450US

PATIENT
  Age: 87 Year
  Sex: Male

DRUGS (7)
  1. LOVENOX [Suspect]
     Indication: MYOCARDIAL INFARCTION
     Dosage: 60 MG BID SC
     Route: 058
     Dates: start: 20030813, end: 20030813
  2. ASPIRIN [Concomitant]
  3. PROSCAR [Concomitant]
  4. PANTOPRAZOLE SODIUM [Concomitant]
  5. PIPERACILLIN SODIUM [Concomitant]
  6. TAZOBACTAM SODIUM (ZOSYN) [Concomitant]
  7. DOPAMINE HCL [Concomitant]

REACTIONS (4)
  - BLOOD CREATININE INCREASED [None]
  - HAEMATOCRIT DECREASED [None]
  - HAEMOGLOBIN DECREASED [None]
  - RECTAL HAEMORRHAGE [None]
